FAERS Safety Report 20338472 (Version 1)
Quarter: 2022Q1

REPORT INFORMATION
  Report Type: Spontaneous
  Country: None (occurrence: A1)
  Receive Date: 20220115
  Receipt Date: 20220115
  Transmission Date: 20220424
  Serious: Yes (Life-Threatening, Hospitalization, Other)
  Sender: FDA-Public Use
  Company Number: A1-Acella Pharmaceuticals, LLC-2123967

PATIENT
  Age: 34 Year
  Sex: Female

DRUGS (1)
  1. GABAPENTIN [Suspect]
     Active Substance: GABAPENTIN
     Indication: Product used for unknown indication
     Route: 065

REACTIONS (3)
  - Acute respiratory distress syndrome [Unknown]
  - Pneumonia influenzal [Unknown]
  - Lung transplant [Unknown]
